FAERS Safety Report 6326338-9 (Version None)
Quarter: 2009Q3

REPORT INFORMATION
  Report Type: 
  Country: None (occurrence: None)
  Receive Date: 20090821
  Receipt Date: 20090807
  Transmission Date: 20100115
  Serious: Yes (Other)
  Sender: FDA-Public Use
  Company Number: 20090364

PATIENT
  Age: 54 Year
  Sex: Female

DRUGS (2)
  1. GLYCOPYRROLATE INJECTION, USP (4601-25) 0.2 MG/ML [Suspect]
     Indication: HYPOTONIA
     Dosage: INJECTION NOS
  2. NEOSTIGMINE METHYLSULFATE INJECTION, USP (0033-25) 1.0 MG/ML [Suspect]
     Indication: HYPOTONIA
     Dosage: INJECTION NOS

REACTIONS (3)
  - EYE SWELLING [None]
  - POST PROCEDURAL COMPLICATION [None]
  - RASH GENERALISED [None]
